FAERS Safety Report 4668344-6 (Version None)
Quarter: 2005Q2

REPORT INFORMATION
  Report Type: 
  Country: None (occurrence: None)
  Receive Date: 20050523
  Receipt Date: 20041206
  Transmission Date: 20051028
  Serious: Yes (Disabling)
  Sender: FDA-Public Use
  Company Number: PHFR2004GB04501

PATIENT
  Age: 71 Year
  Sex: Male

DRUGS (10)
  1. ZOMETA [Suspect]
     Indication: PROSTATE CANCER
     Dosage: UNK, UNK
     Route: 042
     Dates: start: 20030901
  2. DICLOFENAC SODIUM [Concomitant]
     Route: 065
  3. DIETHYLSTILBESTROL [Concomitant]
     Route: 065
  4. ATENOLOL [Concomitant]
     Route: 065
  5. LIPITOR [Concomitant]
     Route: 065
  6. AMITRIPTYLINE [Concomitant]
     Route: 065
  7. ASPIRIN [Concomitant]
     Route: 065
  8. DEXAMETHASONE [Concomitant]
     Route: 065
  9. CLARITHROMYCIN [Concomitant]
     Route: 065
  10. ERYTHROMYCIN [Concomitant]
     Route: 065

REACTIONS (4)
  - FACE OEDEMA [None]
  - JAW DISORDER [None]
  - OSTEONECROSIS [None]
  - TOOTH EXTRACTION [None]
